FAERS Safety Report 17820976 (Version 1)
Quarter: 2020Q2

REPORT INFORMATION
  Report Type: Spontaneous
  Country: PK (occurrence: PK)
  Receive Date: 20200525
  Receipt Date: 20200525
  Transmission Date: 20200714
  Serious: Yes (Hospitalization, Other)
  Sender: FDA-Public Use
  Company Number: PK-NOVOPROD-728837

PATIENT
  Age: 49 Year
  Sex: Male
  Weight: 66 kg

DRUGS (1)
  1. NOVOMIX 30 FLEXPEN [Suspect]
     Active Substance: INSULIN ASPART
     Indication: TYPE 2 DIABETES MELLITUS
     Dosage: 60+56 UNITS
     Route: 058
     Dates: start: 20190512, end: 20200423

REACTIONS (2)
  - Condition aggravated [Unknown]
  - Hepatic cirrhosis [Unknown]
